FAERS Safety Report 4992933-2 (Version None)
Quarter: 2006Q2

REPORT INFORMATION
  Report Type: 
  Country: None (occurrence: None)
  Receive Date: 20060504
  Receipt Date: 20060425
  Transmission Date: 20061013
  Serious: Yes (Hospitalization)
  Sender: FDA-Public Use
  Company Number: US-MERCK-0604USA04052

PATIENT
  Age: 70 Year
  Sex: Female
  Weight: 58 kg

DRUGS (11)
  1. VIOXX [Suspect]
     Indication: RHEUMATOID ARTHRITIS
     Route: 048
     Dates: start: 19990716
  2. VIOXX [Suspect]
     Route: 048
     Dates: start: 19990716
  3. PLAQUENIL [Concomitant]
     Route: 065
  4. MAVIK [Concomitant]
     Route: 065
  5. PRAVACHOL [Concomitant]
     Route: 065
  6. PREVACID [Concomitant]
     Route: 065
  7. FLEXERIL [Concomitant]
     Route: 065
  8. ACTONEL [Concomitant]
     Route: 065
  9. PREMPRO [Concomitant]
     Route: 065
  10. COVERA-HS [Concomitant]
     Route: 065
  11. CALCIUM (UNSPECIFIED) [Concomitant]
     Route: 065

REACTIONS (1)
  - CEREBROVASCULAR ACCIDENT [None]
